FAERS Safety Report 18691119 (Version 11)
Quarter: 2025Q2

REPORT INFORMATION
  Report Type: Report from Study
  Country: US (occurrence: US)
  Receive Date: 20210101
  Receipt Date: 20250605
  Transmission Date: 20250717
  Serious: Yes (Other)
  Sender: TAKEDA
  Company Number: US-TAKEDA-US202027920

PATIENT
  Sex: Female

DRUGS (2)
  1. HUMAN IMMUNOGLOBULIN G [Suspect]
     Active Substance: HUMAN IMMUNOGLOBULIN G
     Indication: Primary immunodeficiency syndrome
     Dosage: 12.5 GRAM, 1/WEEK
  2. HUMAN IMMUNOGLOBULIN G [Suspect]
     Active Substance: HUMAN IMMUNOGLOBULIN G
     Indication: Immunodeficiency common variable

REACTIONS (15)
  - Pneumonia [Recovering/Resolving]
  - Pituitary tumour recurrent [Unknown]
  - Asthma [Unknown]
  - Irritable bowel syndrome [Unknown]
  - Accident [Unknown]
  - Back injury [Recovering/Resolving]
  - COVID-19 [Unknown]
  - Urinary tract infection [Unknown]
  - Ear infection [Unknown]
  - Bronchitis [Not Recovered/Not Resolved]
  - Infection [Unknown]
  - Influenza [Recovering/Resolving]
  - Sinusitis [Unknown]
  - Malaise [Unknown]
  - Back pain [Unknown]
